FAERS Safety Report 18912996 (Version 1)
Quarter: 2021Q1

REPORT INFORMATION
  Report Type: Report from Study
  Country: None (occurrence: US)
  Receive Date: 20210219
  Receipt Date: 20210219
  Transmission Date: 20210420
  Serious: Yes (Hospitalization)
  Sender: FDA-Public Use
  Company Number: US-ABBVIE-21K-163-3733125-00

PATIENT
  Sex: Male

DRUGS (2)
  1. VENCLEXTA [Suspect]
     Active Substance: VENETOCLAX
     Indication: CHRONIC LYMPHOCYTIC LEUKAEMIA
     Route: 048
     Dates: start: 202003, end: 2020
  2. VENCLEXTA [Suspect]
     Active Substance: VENETOCLAX
     Route: 048
     Dates: start: 2021

REACTIONS (3)
  - Fall [Recovered/Resolved]
  - Rib fracture [Recovered/Resolved]
  - Hypophagia [Unknown]

NARRATIVE: CASE EVENT DATE: 2020
